FAERS Safety Report 20021266 (Version 1)
Quarter: 2021Q4

REPORT INFORMATION
  Report Type: Spontaneous
  Country: CO (occurrence: CO)
  Receive Date: 20211101
  Receipt Date: 20211101
  Transmission Date: 20220303
  Serious: Yes (Other)
  Sender: FDA-Public Use
  Company Number: CO-BAYER-2021A238296

PATIENT
  Age: 56 Year
  Sex: Male

DRUGS (2)
  1. DROSPIRENONE\ESTRADIOL [Suspect]
     Active Substance: DROSPIRENONE\ESTRADIOL
     Indication: Trans-sexualism
     Dosage: 1 DF, QD
     Route: 048
  2. ESTRADIOL VALERATE [Suspect]
     Active Substance: ESTRADIOL VALERATE
     Indication: Gender dysphoria
     Dosage: 2 MG, QD
     Route: 048

REACTIONS (5)
  - Myocardial ischaemia [None]
  - Anxiety [None]
  - Insomnia [None]
  - Cardiac failure [None]
  - Off label use [None]
